FAERS Safety Report 7116302-4 (Version None)
Quarter: 2010Q4

REPORT INFORMATION
  Report Type: 
  Country: None (occurrence: None)
  Receive Date: 20101122
  Receipt Date: 20101115
  Transmission Date: 20110411
  Serious: Yes (Hospitalization)
  Sender: FDA-Public Use
  Company Number: A0742209A

PATIENT
  Age: 74 Year
  Sex: Male

DRUGS (4)
  1. AVANDIA [Suspect]
     Dosage: 2MG UNKNOWN
     Route: 048
     Dates: start: 20051201, end: 20060301
  2. METFORMIN HCL [Concomitant]
     Dosage: 500MG UNKNOWN
     Route: 048
  3. COREG [Concomitant]
  4. LIPITOR [Concomitant]

REACTIONS (3)
  - DYSKINESIA [None]
  - GAIT DISTURBANCE [None]
  - TRANSIENT ISCHAEMIC ATTACK [None]
